FAERS Safety Report 10573351 (Version 2)
Quarter: 2014Q4

REPORT INFORMATION
  Report Type: Spontaneous
  Country: BR (occurrence: BR)
  Receive Date: 20141110
  Receipt Date: 20141217
  Transmission Date: 20150529
  Serious: Yes (Other)
  Sender: FDA-Public Use
  Company Number: BR-SA-2014SA151024

PATIENT
  Sex: Female
  Weight: 70 kg

DRUGS (8)
  1. APIDRA [Suspect]
     Active Substance: INSULIN GLULISINE
     Indication: DIABETES MELLITUS MANAGEMENT
     Dosage: DOSE - 2 IU AND 4 IU
     Route: 065
     Dates: start: 2010
  2. VYTORIN [Concomitant]
     Active Substance: EZETIMIBE\SIMVASTATIN
     Indication: BLOOD CHOLESTEROL
     Route: 065
  3. DIOVAN [Concomitant]
     Active Substance: VALSARTAN
     Route: 065
  4. METFORMIN HYDROCHLORIDE. [Concomitant]
     Active Substance: METFORMIN HYDROCHLORIDE
  5. LANTUS SOLOSTAR [Suspect]
     Active Substance: INSULIN GLARGINE
     Indication: TYPE 2 DIABETES MELLITUS
     Route: 058
     Dates: start: 2010
  6. PURAN [Concomitant]
     Active Substance: LEVOTHYROXINE SODIUM
     Indication: THYROID DISORDER
     Route: 065
  7. ALENIA [Concomitant]
     Active Substance: BUDESONIDE\FORMOTEROL FUMARATE
     Indication: ASTHMA
     Route: 065
  8. SOLOSTAR [Concomitant]
     Active Substance: DEVICE
     Indication: DEVICE THERAPY
     Route: 058
     Dates: start: 2010

REACTIONS (3)
  - Condition aggravated [Recovered/Resolved]
  - Cardiac pacemaker insertion [Unknown]
  - Unevaluable event [Unknown]

NARRATIVE: CASE EVENT DATE: 20140804
